FAERS Safety Report 18599991 (Version 1)
Quarter: 2020Q4

REPORT INFORMATION
  Report Type: Spontaneous
  Country: US (occurrence: US)
  Receive Date: 20201209
  Receipt Date: 20201209
  Transmission Date: 20210114
  Serious: Yes (Other)
  Sender: FDA-Public Use
  Company Number: None

PATIENT
  Age: 72 Year
  Sex: Female
  Weight: 82.56 kg

DRUGS (13)
  1. DUPIXENT [Suspect]
     Active Substance: DUPILUMAB
     Indication: SINUS POLYP
     Route: 058
     Dates: start: 20201008, end: 20201024
  2. SYMBICORT [Concomitant]
     Active Substance: BUDESONIDE\FORMOTEROL FUMARATE DIHYDRATE
  3. GAMMAGARD [Concomitant]
     Active Substance: HUMAN IMMUNOGLOBULIN G
  4. VITAMIN D [Concomitant]
     Active Substance: VITAMIN D NOS
  5. VASCEPA [Concomitant]
     Active Substance: ICOSAPENT ETHYL
  6. FASENRA [Concomitant]
     Active Substance: BENRALIZUMAB
  7. RECLAST [Concomitant]
     Active Substance: ZOLEDRONIC ACID
  8. LO-DOSE ASPIRIN [Concomitant]
  9. CALCIUM [Concomitant]
     Active Substance: CALCIUM
  10. DUPIXENT [Suspect]
     Active Substance: DUPILUMAB
     Indication: ASTHMA
     Route: 058
     Dates: start: 20201008, end: 20201024
  11. ZAFIRUKLAST [Concomitant]
  12. LISINOPRIL. [Concomitant]
     Active Substance: LISINOPRIL
  13. NASOCORT [Concomitant]
     Active Substance: BUDESONIDE

REACTIONS (4)
  - Swelling face [None]
  - Skin exfoliation [None]
  - Lip swelling [None]
  - Injection site urticaria [None]

NARRATIVE: CASE EVENT DATE: 20201024
